FAERS Safety Report 9683567 (Version 2)
Quarter: 2014Q1

REPORT INFORMATION
  Report Type: Spontaneous
  Country: NL (occurrence: NL)
  Receive Date: 20131112
  Receipt Date: 20140109
  Transmission Date: 20141002
  Serious: Yes (Death)
  Sender: FDA-Public Use
  Company Number: NL-JNJFOC-20131102617

PATIENT
  Sex: Male
  Weight: 76 kg

DRUGS (5)
  1. XEPLION [Suspect]
     Indication: SCHIZOPHRENIA
     Route: 030
  2. XEPLION [Suspect]
     Indication: SCHIZOPHRENIA
     Dosage: 75 ML/ 4 HOUR
     Route: 030
     Dates: start: 20120215, end: 20120622
  3. XEPLION [Suspect]
     Indication: SCHIZOPHRENIA
     Dosage: 100 ML/ 4 HOUR
     Route: 030
     Dates: start: 20120622, end: 20120722
  4. LORAZEPAM [Suspect]
     Indication: PRODUCT USED FOR UNKNOWN INDICATION
     Route: 065
  5. PROMETHAZINE [Suspect]
     Indication: PRODUCT USED FOR UNKNOWN INDICATION
     Route: 065

REACTIONS (2)
  - Death [Fatal]
  - Suicidal ideation [Unknown]
